FAERS Safety Report 18432886 (Version 1)
Quarter: 2020Q4

REPORT INFORMATION
  Report Type: Spontaneous
  Country: US (occurrence: US)
  Receive Date: 20201027
  Receipt Date: 20201027
  Transmission Date: 20210114
  Serious: Yes (Other)
  Sender: FDA-Public Use
  Company Number: US-JNJFOC-20201021360

PATIENT
  Sex: Male

DRUGS (1)
  1. RISPERIDONE. [Suspect]
     Active Substance: RISPERIDONE
     Indication: PRODUCT USED FOR UNKNOWN INDICATION
     Route: 048

REACTIONS (8)
  - Dizziness [Unknown]
  - Restlessness [Unknown]
  - Tardive dyskinesia [Unknown]
  - Diabetes mellitus [Unknown]
  - Tremor [Unknown]
  - Abdominal pain [Unknown]
  - Agitation [Unknown]
  - Blood triglycerides increased [Unknown]
